FAERS Safety Report 25301527 (Version 1)
Quarter: 2025Q2

REPORT INFORMATION
  Report Type: Spontaneous
  Country: US (occurrence: None)
  Receive Date: 20250511
  Receipt Date: 20250511
  Transmission Date: 20250717
  Serious: Yes (Disabling)
  Sender: FDA-CTU
  Company Number: None

PATIENT
  Age: 75 Year
  Sex: Male
  Weight: 94.5 kg

DRUGS (10)
  1. ELIQUIS [Suspect]
     Active Substance: APIXABAN
     Indication: Cerebrovascular accident prophylaxis
     Dosage: OTHER QUANTITY : 60 TABLET(S);?FREQUENCY : TWICE A DAY;?
     Route: 048
     Dates: start: 20250404, end: 20250415
  2. TAMSULOSIN [Concomitant]
     Active Substance: TAMSULOSIN
  3. TADALAFIL [Concomitant]
     Active Substance: TADALAFIL
  4. RABEPRAZOLE [Concomitant]
     Active Substance: RABEPRAZOLE
  5. CARVEDILOL [Concomitant]
     Active Substance: CARVEDILOL
  6. FLUTICASONE [Concomitant]
     Active Substance: FLUTICASONE
  7. ZOLPIDEM [Concomitant]
     Active Substance: ZOLPIDEM TARTRATE
  8. ASCORBIC ACID [Concomitant]
     Active Substance: ASCORBIC ACID
  9. calcium-magnesium-zinc tabs [Concomitant]
  10. VITAMIN D3 [Concomitant]
     Active Substance: CHOLECALCIFEROL

REACTIONS (13)
  - Headache [None]
  - Urinary retention [None]
  - Arthralgia [None]
  - Back pain [None]
  - Gait disturbance [None]
  - Blood urine present [None]
  - Fall [None]
  - Head injury [None]
  - Eye haematoma [None]
  - Heart rate increased [None]
  - Blood pressure increased [None]
  - Concussion [None]
  - Urinary tract infection [None]

NARRATIVE: CASE EVENT DATE: 20250416
